FAERS Safety Report 9974007 (Version 2)
Quarter: 2014Q1

REPORT INFORMATION
  Report Type: Report from Study
  Country: PR (occurrence: PR)
  Receive Date: 20140306
  Receipt Date: 20140306
  Transmission Date: 20141002
  Serious: No
  Sender: FDA-Public Use
  Company Number: PR-ABBVIE-12P-131-0988604-00

PATIENT
  Age: 64 Year
  Sex: Female
  Weight: 74 kg

DRUGS (9)
  1. HUMIRA [Suspect]
     Indication: RHEUMATOID ARTHRITIS
     Route: 058
     Dates: start: 200807, end: 201211
  2. HUMIRA [Suspect]
     Route: 058
     Dates: start: 201211, end: 201212
  3. HUMIRA [Suspect]
     Route: 058
     Dates: start: 201212
  4. SINGULAIR [Concomitant]
     Indication: ASTHMA
     Route: 048
  5. ALLEGRA [Concomitant]
     Indication: SINUSITIS
  6. SYNTHROID [Concomitant]
     Indication: THYROID DISORDER
     Route: 048
  7. PLAQUENIL [Concomitant]
     Indication: RHEUMATOID ARTHRITIS
     Route: 048
  8. PLAZO-FLEX HD [Concomitant]
     Indication: SUPPLEMENTATION THERAPY
     Route: 048
  9. FOLIC ACID WITH VITAMIN D [Concomitant]
     Indication: VITAMIN SUPPLEMENTATION
     Route: 048

REACTIONS (5)
  - Ear disorder [Recovered/Resolved]
  - Ear discomfort [Recovered/Resolved]
  - Asthma [Recovered/Resolved]
  - Sinusitis [Recovered/Resolved]
  - Nasopharyngitis [Recovered/Resolved]
